FAERS Safety Report 13265091 (Version 1)
Quarter: 2017Q1

REPORT INFORMATION
  Report Type: Spontaneous
  Country: CH (occurrence: CH)
  Receive Date: 20170223
  Receipt Date: 20170223
  Transmission Date: 20170428
  Serious: Yes (Hospitalization, Other)
  Sender: FDA-Public Use
  Company Number: CH-GLAXOSMITHKLINE-CH2017022529

PATIENT
  Age: 50 Year
  Sex: Female
  Weight: 59 kg

DRUGS (20)
  1. CALCIMAGON D3 [Concomitant]
     Active Substance: CALCIUM\CHOLECALCIFEROL
     Dosage: 1000 MG, QD
     Route: 048
     Dates: start: 20170129
  2. LAMICTAL [Suspect]
     Active Substance: LAMOTRIGINE
     Indication: EPILEPSY
     Dosage: 250 MG, QD
     Route: 048
  3. DAUNORUBICIN [Suspect]
     Active Substance: DAUNORUBICIN
     Indication: B PRECURSOR TYPE ACUTE LEUKAEMIA
     Dosage: 30 MG/M2, QD
     Route: 041
     Dates: start: 20170120, end: 20170122
  4. ELTROXIN [Concomitant]
     Active Substance: LEVOTHYROXINE
     Dosage: 0.1 MG, QD
     Route: 048
     Dates: start: 20170116
  5. ASPARAGINASE [Suspect]
     Active Substance: ASPARAGINASE
     Indication: B PRECURSOR TYPE ACUTE LEUKAEMIA
     Dosage: 6000 IU, UNK
     Route: 041
     Dates: start: 20170127, end: 20170131
  6. VINCRISTINE [Suspect]
     Active Substance: VINCRISTINE
     Indication: B PRECURSOR TYPE ACUTE LEUKAEMIA
     Dosage: 2 MG, UNK
     Route: 041
     Dates: start: 20170120, end: 20170127
  7. RANITIDIN [Concomitant]
     Active Substance: RANITIDINE HYDROCHLORIDE
     Dosage: 150 MG, QD
     Route: 048
     Dates: start: 20170120
  8. BACTRIM [Concomitant]
     Active Substance: SULFAMETHOXAZOLE\TRIMETHOPRIM
     Dosage: 800 MG, QOD
     Route: 048
     Dates: start: 20170126
  9. CYCLOPHOSPHAMIDE. [Suspect]
     Active Substance: CYCLOPHOSPHAMIDE
     Indication: B PRECURSOR TYPE ACUTE LEUKAEMIA
     Dosage: 750 MG/M2, UNK
     Route: 041
     Dates: start: 20170120
  10. CALCIUM GLUCONATE. [Concomitant]
     Active Substance: CALCIUM GLUCONATE
     Dosage: 2.25 MMOL, QD
     Route: 041
     Dates: start: 20170201
  11. CYTARABINE. [Suspect]
     Active Substance: CYTARABINE
     Indication: B PRECURSOR TYPE ACUTE LEUKAEMIA
     Dosage: 40 MG, UNK
     Route: 037
     Dates: start: 20170116
  12. VALTREX [Concomitant]
     Active Substance: VALACYCLOVIR HYDROCHLORIDE
     Dosage: 500 MG, BID
     Route: 048
  13. AMBISOME [Concomitant]
     Active Substance: AMPHOTERICIN B
     Dosage: 300 MG, QD
     Route: 041
     Dates: start: 20170126
  14. QUANTALAN [Concomitant]
     Active Substance: CHOLESTYRAMINE
     Dosage: 2 G, QD
     Route: 048
     Dates: start: 20170112
  15. LIQUEMINE [Concomitant]
     Active Substance: HEPARIN SODIUM
     Dosage: UNK
     Route: 041
     Dates: start: 20170131
  16. METHOTREXATE. [Suspect]
     Active Substance: METHOTREXATE
     Indication: B PRECURSOR TYPE ACUTE LEUKAEMIA
     Dosage: 15 MG, UNK
     Route: 037
     Dates: start: 20170116, end: 20170127
  17. AUGMENTIN [Suspect]
     Active Substance: AMOXICILLIN\CLAVULANATE POTASSIUM
     Indication: PRODUCT USED FOR UNKNOWN INDICATION
     Dosage: 2200 MG, TID
     Route: 041
     Dates: start: 20170202
  18. CYTARABINE. [Suspect]
     Active Substance: CYTARABINE
     Dosage: 40 MG, UNK
     Route: 037
     Dates: start: 20170120
  19. CYTARABINE. [Suspect]
     Active Substance: CYTARABINE
     Dosage: 40 MG, UNK
     Route: 037
     Dates: start: 20170127, end: 20170127
  20. IMPORTAL [Concomitant]
     Active Substance: LACTITOL
     Dosage: 20 MG, QD
     Route: 048
     Dates: start: 20170131

REACTIONS (6)
  - Memory impairment [Recovering/Resolving]
  - Anxiety [Recovering/Resolving]
  - Therapy cessation [Unknown]
  - Ataxia [Recovering/Resolving]
  - Encephalopathy [Recovering/Resolving]
  - Nuclear magnetic resonance imaging brain abnormal [Unknown]

NARRATIVE: CASE EVENT DATE: 20170203
